FAERS Safety Report 5636821-7 (Version None)
Quarter: 2008Q1

REPORT INFORMATION
  Report Type: 
  Country: None (occurrence: None)
  Receive Date: 20080225
  Receipt Date: 20080214
  Transmission Date: 20080703
  Serious: Yes (Hospitalization)
  Sender: FDA-Public Use
  Company Number: US-ROCHE-547587

PATIENT
  Sex: Male

DRUGS (3)
  1. VALIUM [Suspect]
     Indication: DRUG USE FOR UNKNOWN INDICATION
     Route: 065
  2. XANAX [Suspect]
     Indication: DRUG USE FOR UNKNOWN INDICATION
     Route: 065
  3. CELEXA [Suspect]
     Indication: DRUG USE FOR UNKNOWN INDICATION
     Route: 065

REACTIONS (7)
  - FEELING ABNORMAL [None]
  - HERPES VIRUS INFECTION [None]
  - MALAISE [None]
  - PAIN [None]
  - PULMONARY THROMBOSIS [None]
  - SOMNOLENCE [None]
  - SPINAL COLUMN STENOSIS [None]
